FAERS Safety Report 20852306 (Version 1)
Quarter: 2022Q2

REPORT INFORMATION
  Report Type: Spontaneous
  Country: CN (occurrence: None)
  Receive Date: 20220520
  Receipt Date: 20220520
  Transmission Date: 20220721
  Serious: Yes (Other)
  Sender: FDA-Public Use
  Company Number: CN-ROCHE-3099844

PATIENT
  Age: 40 Year
  Sex: Male

DRUGS (14)
  1. MABTHERA [Suspect]
     Active Substance: RITUXIMAB
     Indication: Follicular lymphoma
     Dosage: RCDOP
     Route: 065
     Dates: start: 201905, end: 201908
  2. MABTHERA [Suspect]
     Active Substance: RITUXIMAB
     Dosage: R
     Route: 065
     Dates: start: 201909, end: 201912
  3. MABTHERA [Suspect]
     Active Substance: RITUXIMAB
     Dosage: R2
     Route: 065
     Dates: start: 20200305
  4. MABTHERA [Suspect]
     Active Substance: RITUXIMAB
     Dosage: RFC
     Route: 065
     Dates: start: 20200328
  5. MABTHERA [Suspect]
     Active Substance: RITUXIMAB
     Dosage: R2+IBRUTINIB
     Route: 065
     Dates: start: 20200421
  6. CYCLOPHOSPHAMIDE [Concomitant]
     Active Substance: CYCLOPHOSPHAMIDE
     Indication: Follicular lymphoma
     Dosage: RCDOP
     Dates: start: 201905, end: 201908
  7. CYCLOPHOSPHAMIDE [Concomitant]
     Active Substance: CYCLOPHOSPHAMIDE
     Dosage: RFC
     Dates: start: 20200328
  8. DOXORUBICIN [Concomitant]
     Active Substance: DOXORUBICIN
     Indication: Follicular lymphoma
     Dosage: RCDOP
     Dates: start: 201905, end: 201908
  9. VINCRISTINE [Concomitant]
     Active Substance: VINCRISTINE
     Indication: Follicular lymphoma
     Dosage: RCDOP
     Dates: start: 201905, end: 201908
  10. PREDNISONE [Concomitant]
     Active Substance: PREDNISONE
     Indication: Follicular lymphoma
     Dosage: RCDOP
     Dates: start: 201905, end: 201908
  11. LENALIDOMIDE [Concomitant]
     Active Substance: LENALIDOMIDE
     Indication: Follicular lymphoma
     Dosage: R2
     Dates: start: 20200305
  12. LENALIDOMIDE [Concomitant]
     Active Substance: LENALIDOMIDE
     Dosage: R2+IBRUTINIB
     Dates: start: 20200421
  13. IBRUTINIB [Concomitant]
     Active Substance: IBRUTINIB
     Indication: Follicular lymphoma
     Dosage: R2+IBRUTINIB
     Dates: start: 20200421
  14. FLUDARABINE [Concomitant]
     Active Substance: FLUDARABINE PHOSPHATE
     Indication: Follicular lymphoma
     Dosage: RFC
     Dates: start: 20200328

REACTIONS (6)
  - White blood cell count decreased [Unknown]
  - Platelet count decreased [Unknown]
  - Rash [Unknown]
  - Pruritus [Unknown]
  - Pyrexia [Unknown]
  - Haemoglobin decreased [Unknown]
